FAERS Safety Report 21875442 (Version 1)
Quarter: 2023Q1

REPORT INFORMATION
  Report Type: Spontaneous
  Country: ES (occurrence: ES)
  Receive Date: 20230118
  Receipt Date: 20230118
  Transmission Date: 20230418
  Serious: Yes (Other)
  Sender: FDA-Public Use
  Company Number: ES-SUN PHARMACEUTICAL INDUSTRIES LTD-2023R1-373113

PATIENT
  Age: 42 Year
  Sex: Female

DRUGS (6)
  1. CETIRIZINE [Suspect]
     Active Substance: CETIRIZINE HYDROCHLORIDE
     Indication: Immune tolerance induction
     Dosage: UNK (10 MG)
     Route: 048
  2. FAMOTIDINE [Suspect]
     Active Substance: FAMOTIDINE
     Indication: Immune tolerance induction
     Dosage: UNK (40 MG)
     Route: 048
  3. METHYLPREDNISOLONE [Suspect]
     Active Substance: METHYLPREDNISOLONE
     Indication: Immune tolerance induction
     Dosage: UNK (125 MG)
     Route: 042
  4. DEXCHLORPHENIRAMINE [Suspect]
     Active Substance: DEXCHLORPHENIRAMINE
     Indication: Immune tolerance induction
     Dosage: UNK (5 MG)
     Route: 042
  5. OMALIZUMAB [Suspect]
     Active Substance: OMALIZUMAB
     Indication: Immune tolerance induction
     Dosage: UNK (300 MG)
     Route: 058
  6. TRASTUZUMAB [Concomitant]
     Active Substance: TRASTUZUMAB
     Indication: Invasive ductal breast carcinoma
     Dosage: UNK (TOTAL- 450 MG)
     Route: 065

REACTIONS (2)
  - Disease progression [Unknown]
  - Rash maculo-papular [Recovered/Resolved]
